FAERS Safety Report 7335402 (Version 5)
Quarter: 2013Q4

REPORT INFORMATION
  Report Type: Spontaneous
  Country: US (occurrence: US)
  Receive Date: 20100329
  Receipt Date: 20131021
  Transmission Date: 20140711
  Serious: Yes (Hospitalization, Other)
  Sender: FDA-Public Use
  Company Number: US-ROCHE-649306

PATIENT
  Age: 17 Year
  Sex: Female
  Weight: 72.64 kg

DRUGS (1)
  1. ACCUTANE [Suspect]
     Indication: ACNE
     Dosage: 40 MG QD ALTERNATING WITH 40 MG BID ON MON, WED, FRI
     Route: 065
     Dates: start: 20000309, end: 20000725

REACTIONS (12)
  - Colitis ulcerative [Unknown]
  - Nephrolithiasis [Unknown]
  - Inflammatory bowel disease [Unknown]
  - Osteopenia [Unknown]
  - Depression [Unknown]
  - Anal fissure [Unknown]
  - Irritable bowel syndrome [Unknown]
  - Night blindness [Unknown]
  - Cheilitis [Unknown]
  - Blood cholesterol increased [Unknown]
  - Fatigue [Unknown]
  - Back pain [Recovered/Resolved]
